FAERS Safety Report 13708564 (Version 2)
Quarter: 2017Q3

REPORT INFORMATION
  Report Type: Report from Study
  Country: MX (occurrence: MX)
  Receive Date: 20170630
  Receipt Date: 20170706
  Transmission Date: 20171127
  Serious: No
  Sender: FDA-Public Use
  Company Number: MX-UCBSA-2017025115

PATIENT
  Age: 12 Year
  Sex: Male
  Weight: 42 kg

DRUGS (9)
  1. BRIVARACETAM [Suspect]
     Active Substance: BRIVARACETAM
     Indication: EPILEPSY
     Dosage: 100 MG, 2X/DAY (BID)
     Route: 048
     Dates: start: 20161228
  2. VALPROATE MAGNESIUM [Concomitant]
     Active Substance: VALPROATE MAGNESIUM
     Dosage: 1200 MG, TOTAL
     Route: 048
     Dates: start: 20170324, end: 20170324
  3. CLONAZEPAM. [Concomitant]
     Active Substance: CLONAZEPAM
     Indication: EPILEPSY
     Dosage: 0.5 MG, 2X/DAY (BID)
     Route: 048
     Dates: start: 20130409
  4. AMPICILLIN [Concomitant]
     Active Substance: AMPICILLIN
     Indication: PRODUCT USED FOR UNKNOWN INDICATION
     Dosage: 500 MG, TOTAL
     Dates: start: 20170324, end: 20170324
  5. BRIVARACETAM [Suspect]
     Active Substance: BRIVARACETAM
     Dosage: 750 MG, TOTAL
     Route: 048
     Dates: start: 20170324, end: 20170324
  6. RISPERIDONE. [Concomitant]
     Active Substance: RISPERIDONE
     Dosage: 2 MG, TOTAL
     Route: 048
     Dates: start: 20170324, end: 20170324
  7. LORATADINE. [Concomitant]
     Active Substance: LORATADINE
     Indication: PRODUCT USED FOR UNKNOWN INDICATION
     Dosage: 10 MG, TOTAL
  8. VALPROATE MAGNESIUM [Concomitant]
     Active Substance: VALPROATE MAGNESIUM
     Indication: EPILEPSY
     Dosage: 400 MG, 3X/DAY (TID)
     Route: 048
     Dates: start: 20161229
  9. RISPERIDONE. [Concomitant]
     Active Substance: RISPERIDONE
     Indication: AGGRESSION
     Dosage: 1 MG, 2X/DAY (BID)
     Route: 048
     Dates: start: 20150927

REACTIONS (1)
  - Overdose [Recovered/Resolved]

NARRATIVE: CASE EVENT DATE: 20170324
